FAERS Safety Report 11840437 (Version 1)
Quarter: 2015Q4

REPORT INFORMATION
  Report Type: Spontaneous
  Country: US (occurrence: None)
  Receive Date: 20151215
  Receipt Date: 20151215
  Transmission Date: 20160305
  Serious: No
  Sender: FDA-Public Use
  Company Number: None

PATIENT

DRUGS (1)
  1. FIRST LANSOPRAZOLE RX [Suspect]
     Active Substance: LANSOPRAZOLE
     Dates: start: 20151001, end: 20151214

REACTIONS (1)
  - Product label issue [None]

NARRATIVE: CASE EVENT DATE: 20151214
